FAERS Safety Report 5692525-6 (Version None)
Quarter: 2008Q2

REPORT INFORMATION
  Report Type: 
  Country: None (occurrence: None)
  Receive Date: 20080328
  Receipt Date: 20080107
  Transmission Date: 20081010
  Serious: No
  Sender: FDA-Public Use
  Company Number: US-WYE-H02059208

PATIENT
  Age: 61 Year
  Sex: Male

DRUGS (7)
  1. TORISEL [Suspect]
     Indication: RENAL CELL CARCINOMA
     Dosage: INTRAVENOUS ; 25 MG 1X PER 1 WK, INTRAVENOUS
     Route: 042
     Dates: start: 20070716, end: 20070910
  2. TORISEL [Suspect]
     Indication: RENAL CELL CARCINOMA
     Dosage: INTRAVENOUS ; 25 MG 1X PER 1 WK, INTRAVENOUS
     Route: 042
     Dates: start: 20080107
  3. NORTRIPTYLINE HCL [Concomitant]
  4. PROTONIX [Concomitant]
  5. FERROUS SULFATE TAB [Concomitant]
  6. ERY-TAB (ERYTHROMYCIN) [Concomitant]
  7. ATENOLOL [Concomitant]

REACTIONS (2)
  - HYPERCHOLESTEROLAEMIA [None]
  - RASH PRURITIC [None]
